FAERS Safety Report 17747739 (Version 2)
Quarter: 2021Q2

REPORT INFORMATION
  Report Type: Spontaneous
  Country: US (occurrence: US)
  Receive Date: 20200505
  Receipt Date: 20210505
  Transmission Date: 20210716
  Serious: No
  Sender: FDA-Public Use
  Company Number: US-ROCHE-2559151

PATIENT
  Sex: Female

DRUGS (2)
  1. ESBRIET [Suspect]
     Active Substance: PIRFENIDONE
     Indication: IDIOPATHIC PULMONARY FIBROSIS
     Dosage: BY MOUTH
     Route: 048
     Dates: start: 20200228
  2. ESBRIET [Suspect]
     Active Substance: PIRFENIDONE
     Dosage: 6 PILLS
     Route: 048

REACTIONS (6)
  - Gastric disorder [Unknown]
  - Product dose omission in error [Unknown]
  - Oesophageal irritation [Unknown]
  - Product administration error [Unknown]
  - Feeling hot [Unknown]
  - Pruritus [Unknown]
